FAERS Safety Report 5546073-4 (Version None)
Quarter: 2007Q4

REPORT INFORMATION
  Report Type: 
  Country: None (occurrence: None)
  Receive Date: 20071211
  Receipt Date: 20071026
  Transmission Date: 20080405
  Serious: No
  Sender: FDA-Public Use
  Company Number: US-BRISTOL-MYERS SQUIBB COMPANY-13916614

PATIENT
  Age: 55 Year
  Sex: Female
  Weight: 68 kg

DRUGS (7)
  1. EMSAM [Suspect]
     Indication: DEPRESSION
     Dosage: INCREASED TO 9MG/24HOUR TRANSDERMAL.
     Route: 062
     Dates: start: 20070919
  2. LAMICTAL [Concomitant]
  3. XANAX [Concomitant]
  4. AMBIEN [Concomitant]
  5. SYNTHROID [Concomitant]
  6. PROGESTERONE [Concomitant]
  7. ESTROGEN [Concomitant]

REACTIONS (6)
  - ABNORMAL BEHAVIOUR [None]
  - CHEST DISCOMFORT [None]
  - DYSPNOEA [None]
  - HEADACHE [None]
  - NAUSEA [None]
  - NERVOUSNESS [None]
